FAERS Safety Report 18430701 (Version 1)
Quarter: 2020Q4

REPORT INFORMATION
  Report Type: Spontaneous
  Country: US (occurrence: US)
  Receive Date: 20201026
  Receipt Date: 20201026
  Transmission Date: 20210114
  Serious: Yes (Hospitalization)
  Sender: FDA-Public Use
  Company Number: None

PATIENT
  Age: 73 Year
  Sex: Female
  Weight: 68.9 kg

DRUGS (1)
  1. ISOSULFAN BLUE (LYMPHAZURIN) [Suspect]
     Active Substance: ISOSULFAN BLUE
     Dates: start: 20201008, end: 20201008

REACTIONS (1)
  - Anaphylactic reaction [None]

NARRATIVE: CASE EVENT DATE: 20201008
